FAERS Safety Report 10029755 (Version 2)
Quarter: 2014Q1

REPORT INFORMATION
  Report Type: Report from Study
  Country: IL (occurrence: IL)
  Receive Date: 20140322
  Receipt Date: 20140322
  Transmission Date: 20141002
  Serious: Yes (Other)
  Sender: FDA-Public Use
  Company Number: IL-009507513-1403ISR002281

PATIENT
  Age: 36 Year
  Sex: Female

DRUGS (3)
  1. REBETOL [Suspect]
     Indication: HEPATITIS C
     Dosage: 1000MG, QD
     Route: 048
     Dates: start: 20130219, end: 20130730
  2. PEGINTERFERON ALFA-2A [Suspect]
     Indication: HEPATITIS C
     Dosage: DOSE, FORM , FREQUENCY: NOT REPORTED
     Route: 058
     Dates: start: 20130219, end: 20130730
  3. BOCEPREVIR [Suspect]
     Indication: HEPATITIS C
     Dosage: DOSAGE REGIMEN : NOT REPORTED
     Route: 048
     Dates: start: 20130319, end: 20130730

REACTIONS (2)
  - Abortion induced [Unknown]
  - Pregnancy [Recovered/Resolved]
